FAERS Safety Report 17605598 (Version 1)
Quarter: 2020Q1

REPORT INFORMATION
  Report Type: Spontaneous
  Country: IN (occurrence: IN)
  Receive Date: 20200331
  Receipt Date: 20200331
  Transmission Date: 20200409
  Serious: Yes (Other)
  Sender: FDA-Public Use
  Company Number: None

PATIENT
  Age: 33 Year
  Sex: Female
  Weight: 55 kg

DRUGS (2)
  1. LAKME SUNSCREEN LOTION SPF 50 (TITANIUM DIOXIDE\ZINC OXIDE) [Suspect]
     Active Substance: TITANIUM DIOXIDE\ZINC OXIDE
  2. LAKME SUNSCREEN LOTION SPF 30 (TITANIUM DIOXIDE\ZINC OXIDE) [Suspect]
     Active Substance: TITANIUM DIOXIDE\ZINC OXIDE
     Indication: PROPHYLAXIS AGAINST SOLAR RADIATION

REACTIONS (2)
  - Wound complication [None]
  - Rash pruritic [None]

NARRATIVE: CASE EVENT DATE: 20190209
